FAERS Safety Report 25562321 (Version 2)
Quarter: 2025Q3

REPORT INFORMATION
  Report Type: Spontaneous
  Country: JP (occurrence: JP)
  Receive Date: 20250716
  Receipt Date: 20250812
  Transmission Date: 20251020
  Serious: Yes (Life-Threatening, Hospitalization, Other)
  Sender: CATALYST PHARMA
  Company Number: JP-CATALYSTPHARMACEUTICALPARTNERS-JP-CATA-25-01015

PATIENT
  Age: 16 Year
  Sex: Male

DRUGS (6)
  1. FYCOMPA [Suspect]
     Active Substance: PERAMPANEL
     Indication: Partial seizures
     Dosage: 2.0 MILLIGRAM(S) (2 MILLIGRAM(S), 1 IN 1 DAY) DOSE AND FREQUENCY UNKNOWN
     Route: 048
     Dates: start: 202209, end: 2023
  2. FYCOMPA [Suspect]
     Active Substance: PERAMPANEL
     Dosage: 5.0 MILLIGRAM(S) (5 MILLIGRAM(S), 1 IN 1 DAY)
     Route: 048
     Dates: start: 2023, end: 202401
  3. FYCOMPA [Suspect]
     Active Substance: PERAMPANEL
     Dosage: 6.0 MILLIGRAM(S) (6 MILLIGRAM(S), 1 IN 1 DAY)60 TABLETS DOSE UNKNOWN (PROBABLY) AT ONCE
     Route: 048
     Dates: start: 202401, end: 202405
  4. FYCOMPA [Suspect]
     Active Substance: PERAMPANEL
     Dosage: 7.0 MILLIGRAM(S) (7 MILLIGRAM(S), 1 IN 1 DAY)
     Route: 048
     Dates: start: 202405, end: 202505
  5. FYCOMPA [Suspect]
     Active Substance: PERAMPANEL
     Dosage: 10.0 MILLIGRAM(S) (10 MILLIGRAM(S), 1 IN 1 DAY)
     Route: 048
     Dates: start: 202505, end: 2025
  6. FYCOMPA [Suspect]
     Active Substance: PERAMPANEL
     Dosage: 180.0 MILLIGRAM(S) (180 MILLIGRAM(S), 1 IN 1 DAY) TOOK 60 TABLETS (PROBABLY) AT ONCE (40 TABLETS OF
     Route: 048
     Dates: start: 20250624

REACTIONS (4)
  - Status epilepticus [Recovered/Resolved]
  - Altered state of consciousness [Unknown]
  - Suicide attempt [Recovered/Resolved]
  - Intentional overdose [Unknown]

NARRATIVE: CASE EVENT DATE: 20250624
